FAERS Safety Report 12897567 (Version 1)
Quarter: 2016Q4

REPORT INFORMATION
  Report Type: Report from Study
  Country: BR (occurrence: BR)
  Receive Date: 20161031
  Receipt Date: 20161031
  Transmission Date: 20170207
  Serious: Yes (Other)
  Sender: FDA-Public Use
  Company Number: BR-BIOGEN-2016BI00309823

PATIENT
  Sex: Female

DRUGS (2)
  1. TYSABRI [Suspect]
     Active Substance: NATALIZUMAB
     Indication: MULTIPLE SCLEROSIS
     Route: 065
     Dates: start: 2015
  2. PACO (ACETAMINOPHEN + CODEINE) [Concomitant]
     Indication: RENAL COLIC
     Route: 065

REACTIONS (4)
  - Memory impairment [Unknown]
  - Seizure [Recovered/Resolved]
  - Muscle contractions involuntary [Recovered/Resolved]
  - Somnolence [Unknown]

NARRATIVE: CASE EVENT DATE: 2016
